FAERS Safety Report 8151234-4 (Version None)
Quarter: 2012Q1

REPORT INFORMATION
  Report Type: 
  Country: None (occurrence: None)
  Receive Date: 20120220
  Receipt Date: 20120216
  Transmission Date: 20120608
  Serious: Yes (Death, Hospitalization, Other)
  Sender: FDA-Public Use
  Company Number: PHHY2012BR013901

PATIENT
  Age: 84 Year
  Sex: Male

DRUGS (2)
  1. FORMOTEROL FUMARATE [Suspect]
     Indication: FATIGUE
  2. FORMOTEROL FUMARATE [Suspect]
     Indication: DYSPNOEA

REACTIONS (1)
  - RESPIRATORY FAILURE [None]
